FAERS Safety Report 25892842 (Version 1)
Quarter: 2025Q4

REPORT INFORMATION
  Report Type: Spontaneous
  Country: EU (occurrence: EU)
  Receive Date: 20251007
  Receipt Date: 20251007
  Transmission Date: 20260118
  Serious: Yes (Other)
  Sender: JOHNSON AND JOHNSON
  Company Number: None

PATIENT
  Age: 32 Year
  Sex: Male

DRUGS (16)
  1. REMICADE [Suspect]
     Active Substance: INFLIXIMAB
     Indication: Disease recurrence
     Dosage: TREATMENT WAS REOPTIMIZED (5MG/KG BODYWEIGHT EVERY 4 WEEKS
  2. REMICADE [Suspect]
     Active Substance: INFLIXIMAB
     Indication: Inflammatory bowel disease
     Dosage: INITIATION OF BIOLOGICAL TREATMENT
     Route: 041
     Dates: start: 201006
  3. REMICADE [Suspect]
     Active Substance: INFLIXIMAB
     Indication: Crohn^s disease
     Dosage: 6TH ADMINISTRATION AT STANDARD DOSE (5MG/KG AT 8 WEEKS)
     Route: 041
     Dates: start: 201101
  4. REMICADE [Suspect]
     Active Substance: INFLIXIMAB
     Indication: Colorectal cancer
     Dosage: OPTIMIZATION OF BIOLOGICAL TREATMENT (10 MG/KG PER 8 WEEKS)
     Route: 041
     Dates: start: 201204
  5. REMICADE [Suspect]
     Active Substance: INFLIXIMAB
     Dosage: DOSE HAS BEEN OPTIMIZED (10MG/KG AT 8 WEEKS)
     Route: 041
     Dates: start: 201306
  6. REMICADE [Suspect]
     Active Substance: INFLIXIMAB
     Dosage: MAXIMUM DOSE OF INFLIXIMAB BEING REQUIRED FOR MAINTAINING REMISSION (10MG/KG AT 4 WEEKS)
     Route: 041
     Dates: start: 201312, end: 201407
  7. REMICADE [Suspect]
     Active Substance: INFLIXIMAB
     Dosage: BIOLOGICAL TREATMENT WAS REOPTIMIZED (5 MG/KG AT 4 WEEKS)
     Dates: start: 201507
  8. REMICADE [Suspect]
     Active Substance: INFLIXIMAB
     Dosage: 5 MG/BW EVERY 8 WEEKS
     Route: 041
     Dates: start: 201407
  9. REMICADE [Suspect]
     Active Substance: INFLIXIMAB
     Route: 041
  10. REMICADE [Suspect]
     Active Substance: INFLIXIMAB
     Route: 041
     Dates: start: 201507
  11. CAPECITABINE\OXALIPLATIN [Suspect]
     Active Substance: CAPECITABINE\OXALIPLATIN
     Indication: Adenocarcinoma of colon
     Dosage: 8 CYCLES
     Dates: start: 201810
  12. CAPECITABINE\OXALIPLATIN [Suspect]
     Active Substance: CAPECITABINE\OXALIPLATIN
     Indication: Chemotherapy
  13. FILGRASTIM [Suspect]
     Active Substance: FILGRASTIM
     Indication: Adenocarcinoma of colon
     Dosage: 8 CAPOX CYCLES, IN ASSOCIATION WITH FILGRASTIM
     Dates: start: 201810
  14. FILGRASTIM [Suspect]
     Active Substance: FILGRASTIM
     Indication: Chemotherapy
     Route: 065
  15. AZATHIOPRINE [Concomitant]
     Active Substance: AZATHIOPRINE
     Indication: Inflammatory bowel disease
     Dates: start: 200905
  16. AZATHIOPRINE [Concomitant]
     Active Substance: AZATHIOPRINE
     Indication: Disease recurrence

REACTIONS (9)
  - Paraesthesia [Unknown]
  - Off label use [Unknown]
  - Drug level below therapeutic [Recovered/Resolved]
  - Drug specific antibody present [Recovered/Resolved]
  - Symptom recurrence [Unknown]
  - Off label use [Unknown]
  - Therapeutic response decreased [Unknown]
  - Off label use [Unknown]
  - Condition aggravated [Unknown]

NARRATIVE: CASE EVENT DATE: 20140701
